FAERS Safety Report 12210270 (Version 1)
Quarter: 2016Q1

REPORT INFORMATION
  Report Type: Spontaneous
  Country: US (occurrence: None)
  Receive Date: 20160324
  Receipt Date: 20160324
  Transmission Date: 20160526
  Serious: Yes (Disabling)
  Sender: FDA-Public Use
  Company Number: None

PATIENT
  Age: 63 Year
  Sex: Female
  Weight: 91.17 kg

DRUGS (24)
  1. PREDNISONE. [Concomitant]
     Active Substance: PREDNISONE
  2. BIOCHEMIC PHOSPHATES [Concomitant]
  3. FLAX OIL [Concomitant]
  4. VITAMIN C [Concomitant]
     Active Substance: ASCORBIC ACID
  5. ADVAIR HFA [Suspect]
     Active Substance: FLUTICASONE PROPIONATE\SALMETEROL XINAFOATE
     Indication: ASTHMA
     Dosage: INHALE ONE PUFF TWICE DAILY TAKEN BY MOUTH
     Route: 055
     Dates: start: 20160317, end: 20160317
  6. MAXGXL NAC [Concomitant]
  7. OMEGA KRILL 5X [Concomitant]
  8. OREGANOL P73 (OIL OF OREGANO) [Concomitant]
  9. HYDROCHLOROTHIAZIDE (HCTZ) [Concomitant]
     Active Substance: HYDROCHLOROTHIAZIDE
  10. VITAMIN E [Concomitant]
     Active Substance: .ALPHA.-TOCOPHEROL
  11. ZINC [Concomitant]
     Active Substance: ZINC\ZINC CHLORIDE
  12. ALBUTEROL SULFATE. [Concomitant]
     Active Substance: ALBUTEROL SULFATE
  13. QVAR (BECLOMETHASON HFA) [Concomitant]
  14. NEILMED SINUS RINSE [Concomitant]
     Active Substance: SODIUM BICARBONATE\SODIUM CHLORIDE
  15. PERFECT BIOTICS [Concomitant]
  16. SYSTANE (HYPROMELLOSE 2910 (4000 MPA.S)) [Concomitant]
     Active Substance: HYPROMELLOSE 2910 (4000 MPA.S)
  17. VITAMIN B12 [Concomitant]
     Active Substance: CYANOCOBALAMIN
  18. PROAIR HFA [Concomitant]
     Active Substance: ALBUTEROL SULFATE
  19. CALCIUM WITH VITAMIN D [Concomitant]
     Active Substance: CALCIUM\VITAMIN D
  20. IC-5 INSULIN SUPPORT [Concomitant]
  21. MAGNESIUM [Concomitant]
     Active Substance: MAGNESIUM
  22. PYCNOGENOL [Concomitant]
     Active Substance: DIETARY SUPPLEMENT
  23. NEEM LEAVES [Concomitant]
  24. REFRESH P.M. LUBRICANT EYE OINTMENT [Concomitant]

REACTIONS (3)
  - Chest discomfort [None]
  - Malaise [None]
  - Dyspnoea [None]

NARRATIVE: CASE EVENT DATE: 20160317
